FAERS Safety Report 24804755 (Version 2)
Quarter: 2025Q1

REPORT INFORMATION
  Report Type: Report from Study
  Country: CA (occurrence: CA)
  Receive Date: 20250103
  Receipt Date: 20250116
  Transmission Date: 20250409
  Serious: Yes (Hospitalization)
  Sender: SANOFI AVENTIS
  Company Number: CA-SA-2024SA374446

PATIENT
  Age: 69 Year
  Sex: Male

DRUGS (8)
  1. DUPILUMAB [Suspect]
     Active Substance: DUPILUMAB
     Indication: Chronic rhinosinusitis with nasal polyps
     Route: 058
     Dates: start: 20240514, end: 20240514
  2. DUPILUMAB [Suspect]
     Active Substance: DUPILUMAB
     Dosage: 300 MG, QOW
     Route: 058
     Dates: start: 202405
  3. DUPILUMAB [Suspect]
     Active Substance: DUPILUMAB
  4. PREDNISONE [Suspect]
     Active Substance: PREDNISONE
     Indication: Respiration abnormal
     Dosage: 50 MG, QD
  5. ACETAMINOPHEN [Concomitant]
     Active Substance: ACETAMINOPHEN
  6. ACETAMINOPHEN [Concomitant]
     Active Substance: ACETAMINOPHEN
  7. ACETAMINOPHEN [Concomitant]
     Active Substance: ACETAMINOPHEN
  8. Pms silodosin [Concomitant]

REACTIONS (7)
  - Asthma [Unknown]
  - Respiration abnormal [Unknown]
  - Nasal inflammation [Unknown]
  - Hypersensitivity [Unknown]
  - Sinus disorder [Unknown]
  - Dyspnoea [Unknown]
  - Incorrect dose administered [Unknown]

NARRATIVE: CASE EVENT DATE: 20240101
